FAERS Safety Report 13501449 (Version 2)
Quarter: 2017Q4

REPORT INFORMATION
  Report Type: Spontaneous
  Country: US (occurrence: US)
  Receive Date: 20170501
  Receipt Date: 20171027
  Transmission Date: 20180320
  Serious: No
  Sender: FDA-Public Use
  Company Number: US-ROCHE-1829928

PATIENT
  Sex: Male

DRUGS (1)
  1. ESBRIET [Suspect]
     Active Substance: PIRFENIDONE
     Indication: PRODUCT USED FOR UNKNOWN INDICATION
     Dosage: 3 CAPSULES (267MG/CAP) 3 TIMES DAILY
     Route: 048
     Dates: start: 20160616

REACTIONS (5)
  - Mood swings [Unknown]
  - Photosensitivity reaction [Unknown]
  - Anger [Unknown]
  - Dysgeusia [Unknown]
  - Irritability [Unknown]
